FAERS Safety Report 19473931 (Version 3)
Quarter: 2021Q3

REPORT INFORMATION
  Report Type: Spontaneous
  Country: CA (occurrence: CA)
  Receive Date: 20210629
  Receipt Date: 20210802
  Transmission Date: 20211014
  Serious: Yes (Other)
  Sender: FDA-Public Use
  Company Number: CA-PFIZER INC-2021557063

PATIENT
  Age: 65 Year
  Sex: Male
  Weight: 101 kg

DRUGS (19)
  1. CANDESARTAN. [Concomitant]
     Active Substance: CANDESARTAN
     Dosage: 1 DF, 1X/DAY
  2. METHYLPREDNISOLONE. [Concomitant]
     Active Substance: METHYLPREDNISOLONE
     Indication: PREMEDICATION
     Dosage: 100 MG
     Route: 042
     Dates: start: 20210608, end: 20210608
  3. RISEDRONATE [Concomitant]
     Active Substance: RISEDRONATE SODIUM
     Dosage: 1 DF
  4. SOLU?MEDROL [Concomitant]
     Active Substance: METHYLPREDNISOLONE SODIUM SUCCINATE
     Indication: PREMEDICATION
     Dosage: 50 MG
     Route: 042
  5. JANUVIA [Concomitant]
     Active Substance: SITAGLIPTIN PHOSPHATE
     Dosage: 50 MG (ONCE A DAY IN THE MORNING)
  6. RUXIENCE [Suspect]
     Active Substance: RITUXIMAB-PVVR
     Indication: GRANULOMATOSIS WITH POLYANGIITIS
     Dosage: 500 MG (500MG IV NOW AND IN 14DAYS, THEN NOV2021 AND MAY2022 AND NOV2022)
     Route: 042
     Dates: start: 20210608
  7. CORTISONE [Suspect]
     Active Substance: CORTISONE
     Indication: PREMEDICATION
     Dosage: 1 DF
  8. FINASTERIDE. [Concomitant]
     Active Substance: FINASTERIDE
     Dosage: 5 MG, 1X/DAY
  9. JANUVIA [Concomitant]
     Active Substance: SITAGLIPTIN PHOSPHATE
     Dosage: 1 DF
  10. RUXIENCE [Suspect]
     Active Substance: RITUXIMAB-PVVR
     Indication: VASCULITIS
     Dosage: 500MG (500MG IV NOW AND IN 14DAYS, THEN NOV2021 AND MAY2022 AND NOV2022)
     Route: 042
     Dates: start: 20210623
  11. AMLODIPINE [Concomitant]
     Active Substance: AMLODIPINE BESYLATE
     Dosage: 5 MG, 1X/DAY
  12. BACTRIM DS [Concomitant]
     Active Substance: SULFAMETHOXAZOLE\TRIMETHOPRIM
     Indication: PROPHYLAXIS
     Dosage: 1 DF, 3X/WEEK
  13. REPAGLINIDE. [Concomitant]
     Active Substance: REPAGLINIDE
     Dosage: 1 DF
  14. DEXILANT [Concomitant]
     Active Substance: DEXLANSOPRAZOLE
     Dosage: 60 MG, 1X/DAY
  15. SYNTHROID [Concomitant]
     Active Substance: LEVOTHYROXINE SODIUM
     Dosage: 150 MG, 1X/DAY
  16. TAMSULOSIN [Concomitant]
     Active Substance: TAMSULOSIN
     Dosage: 1 DF, 1X/DAY
  17. VITAMIN D [ERGOCALCIFEROL] [Concomitant]
     Active Substance: ERGOCALCIFEROL
     Dosage: 1000 IU, WEEKLY
  18. GLUCONORM [REPAGLINIDE] [Concomitant]
     Active Substance: REPAGLINIDE
     Dosage: 1 MG
  19. CALCIUM [Concomitant]
     Active Substance: CALCIUM
     Dosage: 500 MG, 2X/DAY

REACTIONS (6)
  - Blood glucose increased [Recovered/Resolved]
  - Malaise [Unknown]
  - Headache [Not Recovered/Not Resolved]
  - Off label use [Unknown]
  - Intentional product use issue [Unknown]
  - Off label use [Unknown]

NARRATIVE: CASE EVENT DATE: 20210608
